FAERS Safety Report 4274923-0 (Version None)
Quarter: 2004Q1

REPORT INFORMATION
  Report Type: 
  Country: None (occurrence: None)
  Receive Date: 20040120
  Receipt Date: 20031119
  Transmission Date: 20041129
  Serious: Yes (Hospitalization, Disabling)
  Sender: FDA-Public Use
  Company Number: WAES 0311USA02228

PATIENT
  Age: 61 Year
  Sex: Male
  Weight: 109 kg

DRUGS (2)
  1. ZETIA [Suspect]
     Indication: HYPERCHOLESTEROLAEMIA
     Route: 048
     Dates: start: 20030501, end: 20031201
  2. ZOCOR [Concomitant]
     Route: 048

REACTIONS (1)
  - NEPHROLITHIASIS [None]
